FAERS Safety Report 15828442 (Version 1)
Quarter: 2019Q1

REPORT INFORMATION
  Report Type: Spontaneous
  Country: US (occurrence: US)
  Receive Date: 20190115
  Receipt Date: 20190115
  Transmission Date: 20190417
  Serious: No
  Sender: FDA-Public Use
  Company Number: US-ALLERGAN-1808583US

PATIENT
  Age: 71 Year
  Sex: Male

DRUGS (2)
  1. RESTASIS [Suspect]
     Active Substance: CYCLOSPORINE
     Indication: DRY EYE
     Dosage: 2 GTT, BID
     Route: 047
     Dates: start: 20180125, end: 20180211
  2. REFRESH OPTIVE ADVANCED            /07868701/ [Concomitant]
     Indication: DRY EYE
     Dosage: UNK
     Route: 047

REACTIONS (3)
  - Product dose omission [Unknown]
  - Wrong technique in product usage process [Unknown]
  - Product container issue [Unknown]

NARRATIVE: CASE EVENT DATE: 20180125
